FAERS Safety Report 16268909 (Version 4)
Quarter: 2019Q3

REPORT INFORMATION
  Report Type: Spontaneous
  Country: US (occurrence: US)
  Receive Date: 20190503
  Receipt Date: 20190730
  Transmission Date: 20191004
  Serious: Yes (Hospitalization, Other)
  Sender: FDA-Public Use
  Company Number: US-UNITED THERAPEUTICS-UNT-2019-004644

PATIENT
  Age: 10 Year
  Sex: Female
  Weight: 22.68 kg

DRUGS (7)
  1. REMODULIN [Suspect]
     Active Substance: TREPROSTINIL
     Indication: PULMONARY ARTERIAL HYPERTENSION
     Dosage: 0.222 ?G/KG, CONTINUING
     Route: 041
     Dates: start: 20120302, end: 20190430
  2. REMODULIN [Suspect]
     Active Substance: TREPROSTINIL
     Indication: PULMONARY ARTERIAL HYPERTENSION
     Dosage: 0.20 ?G/KG, CONTINUING
     Route: 041
     Dates: start: 20120209
  3. LETAIRIS [Suspect]
     Active Substance: AMBRISENTAN
     Indication: HEART DISEASE CONGENITAL
     Dosage: UNK, QD
     Route: 065
     Dates: start: 20180122
  4. LETAIRIS [Suspect]
     Active Substance: AMBRISENTAN
     Indication: LUNG DISORDER
  5. LETAIRIS [Suspect]
     Active Substance: AMBRISENTAN
     Indication: PULMONARY ARTERIAL HYPERTENSION
  6. LETAIRIS [Suspect]
     Active Substance: AMBRISENTAN
     Indication: PULMONARY ARTERIAL HYPERTENSION
     Dosage: 5 MG, QD
     Route: 048
     Dates: start: 20110301
  7. ADCIRCA [Concomitant]
     Active Substance: TADALAFIL
     Indication: PULMONARY ARTERIAL HYPERTENSION
     Dosage: UNK
     Route: 065

REACTIONS (2)
  - Vascular device infection [Recovered/Resolved]
  - Injection site infection [Unknown]

NARRATIVE: CASE EVENT DATE: 20190227
